FAERS Safety Report 5186474-X (Version None)
Quarter: 2006Q4

REPORT INFORMATION
  Report Type: 
  Country: None (occurrence: None)
  Receive Date: 20061220
  Receipt Date: 20061206
  Transmission Date: 20070319
  Serious: Yes (Hospitalization)
  Sender: FDA-Public Use
  Company Number: DE-BOEHRINGER INGELHEIM GMBH, GERMANY-2006-DE-06524DE

PATIENT
  Sex: Male
  Weight: 82 kg

DRUGS (1)
  1. SPIRIVA [Suspect]
     Route: 055
     Dates: start: 20060313

REACTIONS (1)
  - BRONCHOPNEUMONIA [None]
